FAERS Safety Report 23504902 (Version 1)
Quarter: 2024Q1

REPORT INFORMATION
  Report Type: Spontaneous
  Country: GB (occurrence: GB)
  Receive Date: 20240209
  Receipt Date: 20240209
  Transmission Date: 20240410
  Serious: No
  Sender: FDA-Public Use
  Company Number: None

PATIENT
  Age: 87 Year
  Sex: Female
  Weight: 59 kg

DRUGS (9)
  1. GABAPENTIN [Suspect]
     Active Substance: GABAPENTIN
     Indication: Neck pain
     Dosage: UNK (TAKE ONE AT NIGHT INCREASING TO ONE TWICE A DAY AFTER 3 TO 5 DAYS IF TOLERATED) (300 AND 100 MG
     Route: 065
     Dates: start: 20221205, end: 20230103
  2. GABAPENTIN [Suspect]
     Active Substance: GABAPENTIN
     Dosage: 1 DOSAGE FORM, TID (ONE TO BE TAKEN THREE TIMES A DAY) (300 AND 100 MG CAPSULES)
     Route: 065
     Dates: start: 20230103, end: 20230224
  3. COCODAMOL [Concomitant]
     Active Substance: ACETAMINOPHEN\CODEINE PHOSPHATE
     Indication: Back pain
     Dosage: UNK (ONLY 2 TABLETS TO BE TAKEN 4X A DAY REGULARLY TO CONTROL PAIN. NO MORE THAN 8 TABLETS IN 24 HRS
     Route: 065
     Dates: start: 20221215, end: 20230127
  4. COCODAMOL [Concomitant]
     Active Substance: ACETAMINOPHEN\CODEINE PHOSPHATE
     Indication: Arthralgia
     Dosage: UNK (TWO TO BE TAKEN FOUR TIMES A DAY AS REQUIRED (CONTAINS PARACETAMOL)) (30MG/500MG TABLETS, 8MG/5
     Route: 065
     Dates: start: 20230131
  5. COCODAMOL [Concomitant]
     Active Substance: ACETAMINOPHEN\CODEINE PHOSPHATE
     Dosage: UNK (TWO TO BE TAKEN FOUR TIMES A DAY AS REQUIRED (CONTAINS PARACETAMOL)) (30MG/500MG TABLETS, 8MG/5
     Route: 065
     Dates: start: 20230213
  6. MOMETASONE [Concomitant]
     Active Substance: MOMETASONE
     Indication: Chronic sinusitis
     Dosage: UNK (TWO SPRAYS TO BE USED IN EACH NOSTRIL TWICE A DAY, THEN REDUCE WHEN SYMPTOMS UNDER CONTROL) (50
     Route: 045
     Dates: start: 20230216
  7. NAPROXEN [Concomitant]
     Active Substance: NAPROXEN
     Indication: Product used for unknown indication
     Dosage: UNK (ONE TO BE TAKEN UP TO THREE TIMES A DAY WITH FOOD)
     Route: 065
     Dates: start: 20221205, end: 20230108
  8. NAPROXEN [Concomitant]
     Active Substance: NAPROXEN
     Dosage: UNK (ONE TO BE TAKEN UP TO THREE TIMES A DAY WITH FOOD. DO NOT TAKE REGULARLY)
     Route: 065
     Dates: start: 20230130
  9. OTOMIZE [Concomitant]
     Indication: Product used for unknown indication
     Dosage: UNK, TID (ONE SPRAY TO BE USED IN THE AFFECTED EAR(S) THREE TIMES A DAY)
     Route: 065
     Dates: start: 20230224

REACTIONS (1)
  - Dizziness [Unknown]
